FAERS Safety Report 21363810 (Version 1)
Quarter: 2022Q3

REPORT INFORMATION
  Report Type: Spontaneous
  Country: TW (occurrence: TW)
  Receive Date: 20220922
  Receipt Date: 20220922
  Transmission Date: 20221027
  Serious: Yes (Hospitalization)
  Sender: FDA-Public Use
  Company Number: TW-Accord-278400

PATIENT
  Age: 53 Year
  Sex: Female

DRUGS (3)
  1. CARBOPLATIN [Suspect]
     Active Substance: CARBOPLATIN
     Indication: Endometrial adenocarcinoma
     Dosage: AUC 2, WEEKLY SCHEDULE
  2. PACLITAXEL [Suspect]
     Active Substance: PACLITAXEL
     Indication: Endometrial adenocarcinoma
     Dosage: 80 MG/M2, WEEKLY SCHEDULE
  3. NAPROXEN [Concomitant]
     Active Substance: NAPROXEN
     Indication: Pyrexia

REACTIONS (1)
  - Supraventricular tachycardia [Recovered/Resolved]
